FAERS Safety Report 16672860 (Version 1)
Quarter: 2019Q3

REPORT INFORMATION
  Report Type: Spontaneous
  Country: US (occurrence: US)
  Receive Date: 20190806
  Receipt Date: 20190806
  Transmission Date: 20191004
  Serious: Yes (Other)
  Sender: FDA-Public Use
  Company Number: US-009507513-1908USA000195

PATIENT
  Age: 13 Month
  Sex: Male

DRUGS (6)
  1. DIPHTHERIA AND TETANUS TOXOIDS AND ACELLULAR PERTUSSIS VACCINE ADSORBED NOS [Suspect]
     Active Substance: DIPHTHERIA AND TETANUS TOXOIDS AND ACELLULAR PERTUSSIS VACCINE ADSORBED
     Indication: PROPHYLAXIS
     Dosage: UNK
     Dates: start: 200509
  2. POLIOVIRUS VACCINE INACTIVATED NOS [Suspect]
     Active Substance: POLIOVIRUS TYPE 1 ANTIGEN (FORMALDEHYDE INACTIVATED)\POLIOVIRUS TYPE 2 ANTIGEN (FORMALDEHYDE INACTIVATED)\POLIOVIRUS TYPE 3 ANTIGEN (FORMALDEHYDE INACTIVATED)\POLIOVIRUS VACCINE, INACTIVATED
     Indication: PROPHYLAXIS
     Dosage: UNK
     Dates: start: 200509
  3. RECOMBIVAX HB [Suspect]
     Active Substance: HEPATITIS B VIRUS SUBTYPE ADW HBSAG SURFACE PROTEIN ANTIGEN
     Indication: PROPHYLAXIS
     Dates: start: 200509
  4. TYLENOL [Concomitant]
     Active Substance: ACETAMINOPHEN
     Indication: PYREXIA
  5. STERILE DILUENT (WATER) [Suspect]
     Active Substance: WATER
     Dosage: UNK
     Dates: start: 200509
  6. M-M-R II [Suspect]
     Active Substance: MEASLES VIRUS STRAIN ENDERS^ ATTENUATED EDMONSTON LIVE ANTIGEN\MUMPS VIRUS STRAIN B LEVEL JERYL LYNN LIVE ANTIGEN\RUBELLA VIRUS STRAIN WISTAR RA 27/3 LIVE ANTIGEN
     Indication: PROPHYLAXIS
     Dates: start: 200509

REACTIONS (15)
  - Gastrointestinal disorder [Unknown]
  - Screaming [Unknown]
  - Constipation [Unknown]
  - Melaena [Unknown]
  - Pyrexia [Unknown]
  - Aphasia [Unknown]
  - Cognitive disorder [Unknown]
  - Dark circles under eyes [Unknown]
  - Infantile back arching [Unknown]
  - Pain [Unknown]
  - Rash [Unknown]
  - Autism spectrum disorder [Unknown]
  - Inappropriate schedule of product administration [Unknown]
  - Diarrhoea [Unknown]
  - Taciturnity [Unknown]

NARRATIVE: CASE EVENT DATE: 2005
